FAERS Safety Report 18963732 (Version 2)
Quarter: 2021Q1

REPORT INFORMATION
  Report Type: Spontaneous
  Country: FR (occurrence: FR)
  Receive Date: 20210303
  Receipt Date: 20210305
  Transmission Date: 20210420
  Serious: Yes (Life-Threatening)
  Sender: FDA-Public Use
  Company Number: FR-ASTRAZENECA-2021A099199

PATIENT
  Age: 50 Year
  Sex: Female

DRUGS (5)
  1. INSULIN PUMP [Concomitant]
     Active Substance: DEVICE\INSULIN NOS
     Indication: DIABETES MELLITUS INADEQUATE CONTROL
     Dosage: 300IU/DAY
  2. VICTOZA [Concomitant]
     Active Substance: LIRAGLUTIDE
     Indication: DIABETES MELLITUS INADEQUATE CONTROL
  3. STAGID [Concomitant]
     Active Substance: METFORMIN PAMOATE
     Indication: DIABETES MELLITUS INADEQUATE CONTROL
  4. PYOSTACINE [Suspect]
     Active Substance: PRISTINAMYCIN
     Indication: CHRONIC OBSTRUCTIVE PULMONARY DISEASE
     Route: 065
  5. FORXIGA [Suspect]
     Active Substance: DAPAGLIFLOZIN
     Indication: DIABETES MELLITUS INADEQUATE CONTROL
     Dosage: 10.0MG UNKNOWN
     Route: 048

REACTIONS (3)
  - Rash [Recovered/Resolved]
  - Angioedema [Recovered/Resolved]
  - Drug hypersensitivity [Unknown]
